FAERS Safety Report 8736393 (Version 2)
Quarter: 2015Q2

REPORT INFORMATION
  Report Type: Report from Study
  Country: US (occurrence: US)
  Receive Date: 20120822
  Receipt Date: 20150616
  Transmission Date: 20150821
  Serious: Yes (Death)
  Sender: FDA-Public Use
  Company Number: US-ROCHE-1096316

PATIENT
  Sex: Female
  Weight: 88 kg

DRUGS (8)
  1. TARCEVA [Suspect]
     Active Substance: ERLOTINIB HYDROCHLORIDE
     Indication: BREAST CANCER FEMALE
     Dosage: TO INCREASE BY 25 MG WEEKLY UPTO MAX 150 MG
     Route: 048
  2. ADRIAMYCIN [Concomitant]
     Active Substance: DOXORUBICIN HYDROCHLORIDE
  3. DACARBAZINE. [Concomitant]
     Active Substance: DACARBAZINE
  4. FEXOFENADINE [Concomitant]
     Active Substance: FEXOFENADINE\FEXOFENADINE HYDROCHLORIDE
  5. MESNA. [Concomitant]
     Active Substance: MESNA
  6. AVASTIN [Suspect]
     Active Substance: BEVACIZUMAB
     Indication: METASTASES TO SKIN
  7. AVASTIN [Suspect]
     Active Substance: BEVACIZUMAB
     Indication: BREAST CANCER FEMALE
     Dosage: MAX TO 500 IF TOLERATES (DOSE PLANNED: 3 )
     Route: 065
     Dates: start: 20060524
  8. TARCEVA [Suspect]
     Active Substance: ERLOTINIB HYDROCHLORIDE
     Route: 048

REACTIONS (2)
  - Death [Fatal]
  - Off label use [Unknown]
